FAERS Safety Report 18788252 (Version 1)
Quarter: 2021Q1

REPORT INFORMATION
  Report Type: Spontaneous
  Country: US (occurrence: US)
  Receive Date: 20210126
  Receipt Date: 20210126
  Transmission Date: 20210419
  Serious: Yes (Disabling)
  Sender: FDA-Public Use
  Company Number: None

PATIENT
  Age: 40 Year
  Sex: Male
  Weight: 79.65 kg

DRUGS (2)
  1. MULTIVITAMINS [Concomitant]
     Active Substance: VITAMINS
  2. GABAPENTIN. [Suspect]
     Active Substance: GABAPENTIN
     Indication: SCIATICA
     Dosage: ?          QUANTITY:1 CAPSULE(S);?
     Route: 048
     Dates: start: 20200801, end: 20210111

REACTIONS (1)
  - Tinnitus [None]

NARRATIVE: CASE EVENT DATE: 20201222
